FAERS Safety Report 5264358-6 (Version None)
Quarter: 2007Q1

REPORT INFORMATION
  Report Type: 
  Country: None (occurrence: None)
  Receive Date: 20061213
  Receipt Date: 20050207
  Transmission Date: 20070707
  Serious: Yes (Other)
  Sender: FDA-Public Use
  Company Number: 2005UW02118

PATIENT
  Age: 92 Year
  Sex: Female
  Weight: 53.523 kg

DRUGS (3)
  1. IRESSA [Suspect]
     Indication: LUNG NEOPLASM MALIGNANT
     Dates: end: 20050101
  2. COUMADIN [Concomitant]
  3. VITAMIN CAP [Concomitant]

REACTIONS (2)
  - CYSTITIS [None]
  - FATIGUE [None]
